FAERS Safety Report 7769300-1 (Version None)
Quarter: 2011Q3

REPORT INFORMATION
  Report Type: 
  Country: None (occurrence: None)
  Receive Date: 20110922
  Receipt Date: 20110916
  Transmission Date: 20111222
  Serious: Yes (Other)
  Sender: FDA-Public Use
  Company Number: US-B.I. PHARMACEUTICALS,INC./RIDGEFIELD-2011-BP-22360BP

PATIENT
  Age: 64 Year
  Sex: Female

DRUGS (1)
  1. PRADAXA [Suspect]
     Indication: THROMBOPHLEBITIS SUPERFICIAL
     Dosage: 300 MG
     Route: 048
     Dates: start: 20110910

REACTIONS (3)
  - HEADACHE [None]
  - LETHARGY [None]
  - FATIGUE [None]
